FAERS Safety Report 4990716-0 (Version None)
Quarter: 2006Q2

REPORT INFORMATION
  Report Type: 
  Country: None (occurrence: None)
  Receive Date: 20060428
  Receipt Date: 20060413
  Transmission Date: 20061013
  Serious: Yes (Other)
  Sender: FDA-Public Use
  Company Number: CA200604002485

PATIENT
  Sex: Male

DRUGS (3)
  1. STRATTERA [Suspect]
     Dosage: 60 MG, DAILY (1/D)
     Dates: start: 20051101, end: 20060331
  2. MOBIC [Concomitant]
  3. PERCOCET [Concomitant]

REACTIONS (2)
  - BUNDLE BRANCH BLOCK RIGHT [None]
  - VENTRICULAR EXTRASYSTOLES [None]
